FAERS Safety Report 5660839-1 (Version None)
Quarter: 2008Q1

REPORT INFORMATION
  Report Type: 
  Country: None (occurrence: None)
  Receive Date: 20080311
  Receipt Date: 20080303
  Transmission Date: 20080703
  Serious: Yes (Hospitalization)
  Sender: FDA-Public Use
  Company Number: PHBS2005DK06768

PATIENT
  Age: 56 Year
  Sex: Male

DRUGS (3)
  1. DICLOFENAC SODIUM [Suspect]
     Indication: PAIN
     Dosage: 50 MG, TID
     Route: 048
     Dates: start: 20050316, end: 20050601
  2. ACETAMINOPHEN [Concomitant]
     Indication: PAIN
  3. LYRICA [Concomitant]
     Indication: PAIN

REACTIONS (1)
  - CALLUS FORMATION DELAYED [None]
